FAERS Safety Report 8220255-5 (Version None)
Quarter: 2012Q1

REPORT INFORMATION
  Report Type: 
  Country: None (occurrence: None)
  Receive Date: 20120320
  Receipt Date: 20120315
  Transmission Date: 20120608
  Serious: Yes (Hospitalization)
  Sender: FDA-Public Use
  Company Number: GB-SP-2011-11778

PATIENT
  Sex: Male

DRUGS (6)
  1. LANSOPRAZOLE [Concomitant]
  2. ACETAMINOPHEN AND CODEINE PHOSPHATE [Concomitant]
  3. DIAZEPAM [Concomitant]
  4. IMMUCYST [Suspect]
     Indication: BLADDER CANCER
     Route: 043
     Dates: start: 20080814, end: 20081120
  5. TRIMETHOPRIM [Concomitant]
     Indication: PROPHYLAXIS
  6. IBUPROFEN [Concomitant]

REACTIONS (8)
  - SUPRAPUBIC PAIN [None]
  - BOVINE TUBERCULOSIS [None]
  - NAUSEA [None]
  - CHILLS [None]
  - PYREXIA [None]
  - WEIGHT DECREASED [None]
  - LETHARGY [None]
  - NIGHT SWEATS [None]
